FAERS Safety Report 7230301 (Version 5)
Quarter: 2013Q2

REPORT INFORMATION
  Report Type: Spontaneous
  Country: US (occurrence: US)
  Receive Date: 20091224
  Receipt Date: 20130417
  Transmission Date: 20140414
  Serious: Yes (Other)
  Sender: FDA-Public Use
  Company Number: US-ASTRAZENECA-2009SE32959

PATIENT
  Age: 69 Year
  Sex: Female

DRUGS (5)
  1. TOPROL XL [Suspect]
     Route: 048
  2. SEROQUEL [Suspect]
     Route: 048
  3. SEROQUEL [Suspect]
     Route: 048
  4. SEROQUEL [Suspect]
     Route: 048
  5. SEROQUEL [Suspect]
     Route: 048

REACTIONS (4)
  - Suicidal behaviour [Unknown]
  - Cataract [Unknown]
  - Insomnia [Unknown]
  - Drug dose omission [Unknown]
